FAERS Safety Report 8472279-0 (Version None)
Quarter: 2012Q2

REPORT INFORMATION
  Report Type: 
  Country: None (occurrence: None)
  Receive Date: 20120323
  Receipt Date: 20110823
  Transmission Date: 20120825
  Serious: Yes (Hospitalization, Other)
  Sender: FDA-Public Use
  Company Number: 163-21880-11082682

PATIENT
  Age: 83 Year
  Sex: Male
  Weight: 74.8435 kg

DRUGS (11)
  1. REVLIMID [Suspect]
     Indication: MULTIPLE MYELOMA
     Dosage: 10 MG, X 1 D/14 DAY OFF, PO
     Route: 048
     Dates: start: 20100514, end: 20100816
  2. SIMVASTATIN [Concomitant]
  3. VITAMIN B12 [Concomitant]
  4. MELOXICAM [Concomitant]
  5. VELCADE [Concomitant]
  6. CEFAROXIME (CEFACLOR) [Concomitant]
  7. EPIDURAL BLOCK (ALL OTHER THERAPEUTIC PRODUCTS) [Concomitant]
  8. ANTIBIOTICS (ANTIBIOTICS) [Concomitant]
  9. DEXAMETHASONE [Concomitant]
  10. LISINOPRIL [Concomitant]
  11. ASPIRIN [Concomitant]

REACTIONS (1)
  - CELLULITIS [None]
